FAERS Safety Report 9657384 (Version 3)
Quarter: 2013Q4

REPORT INFORMATION
  Report Type: Spontaneous
  Country: US (occurrence: US)
  Receive Date: 20131030
  Receipt Date: 20131202
  Transmission Date: 20140711
  Serious: Yes (Hospitalization, Other)
  Sender: FDA-Public Use
  Company Number: US-PFIZER INC-2013308692

PATIENT
  Age: 83 Year
  Sex: Female

DRUGS (5)
  1. XELJANZ [Suspect]
     Indication: RHEUMATOID ARTHRITIS
     Dosage: UNK
     Route: 065
  2. METHOTREXATE SODIUM [Suspect]
     Indication: RHEUMATOID ARTHRITIS
     Dosage: 20 MG, Q WEEKLY (20 MG/WK)
     Route: 065
  3. PREDNISONE [Suspect]
     Indication: RHEUMATOID ARTHRITIS
     Dosage: 5 MG, QD
     Route: 065
  4. ENBREL [Suspect]
     Indication: RHEUMATOID ARTHRITIS
     Dosage: UNK
     Route: 065
  5. HUMIRA [Suspect]
     Indication: RHEUMATOID ARTHRITIS
     Dosage: UNK

REACTIONS (6)
  - Pancytopenia [Recovered/Resolved]
  - Melaena [Recovered/Resolved]
  - Thrombocytopenia [Recovered/Resolved]
  - Epistaxis [Recovered/Resolved]
  - Gastritis [Unknown]
  - Drug ineffective [Unknown]
